FAERS Safety Report 6783995-0 (Version None)
Quarter: 2010Q2

REPORT INFORMATION
  Report Type: 
  Country: None (occurrence: None)
  Receive Date: 20100622
  Receipt Date: 20090306
  Transmission Date: 20101027
  Serious: Yes (Hospitalization)
  Sender: FDA-Public Use
  Company Number: US-ASTRAZENECA-2010SE28673

PATIENT
  Age: 64 Year
  Sex: Female

DRUGS (12)
  1. ROSUVASTATIN [Suspect]
     Indication: HYPERCHOLESTEROLAEMIA
     Route: 048
     Dates: start: 20070101, end: 20070601
  2. LIPANTHYL [Suspect]
     Indication: HYPERCHOLESTEROLAEMIA
     Route: 048
     Dates: start: 20060301, end: 20061201
  3. FLUVASTATIN [Suspect]
     Indication: HYPERCHOLESTEROLAEMIA
     Route: 048
     Dates: start: 20020201, end: 20031201
  4. FLUVASTATIN [Suspect]
     Route: 048
     Dates: start: 20031201, end: 20041101
  5. SIMVASTATIN [Suspect]
     Indication: HYPERCHOLESTEROLAEMIA
     Route: 048
     Dates: start: 20041201, end: 20051001
  6. EZETIMIBE [Suspect]
     Indication: HYPERCHOLESTEROLAEMIA
     Route: 048
     Dates: start: 20051101, end: 20060301
  7. CHOLESTYRAMINE [Suspect]
     Indication: HYPERCHOLESTEROLAEMIA
     Route: 048
     Dates: start: 20070701, end: 20080501
  8. STATICONCEPT [Suspect]
     Indication: HYPERCHOLESTEROLAEMIA
     Dosage: 2 IN 1 D
     Route: 048
  9. IBANDRONIC ACID [Concomitant]
     Indication: OSTEOPOROSIS
     Route: 048
  10. HOMEOPATHY [Concomitant]
     Route: 048
     Dates: start: 20080501
  11. TELITHROMYCIN [Concomitant]
     Dosage: 1000 (500, 2 IN 1 D)
  12. LEKOVIT CA [Concomitant]

REACTIONS (8)
  - APHONIA [None]
  - C-REACTIVE PROTEIN INCREASED [None]
  - CHEST PAIN [None]
  - COUGH [None]
  - INTERSTITIAL LUNG DISEASE [None]
  - ORGANISING PNEUMONIA [None]
  - PNEUMONIA [None]
  - PYREXIA [None]
